FAERS Safety Report 10932420 (Version 1)
Quarter: 2015Q1

REPORT INFORMATION
  Report Type: Spontaneous
  Country: US (occurrence: None)
  Receive Date: 20150318
  Receipt Date: 20150318
  Transmission Date: 20150721
  Serious: Yes (Hospitalization, Other)
  Sender: FDA-Public Use
  Company Number: US-ZYDUS-007071

PATIENT
  Age: 60 Year
  Sex: Female

DRUGS (1)
  1. METFORMIN [Suspect]
     Active Substance: METFORMIN HYDROCHLORIDE
     Indication: TYPE 2 DIABETES MELLITUS

REACTIONS (7)
  - Hypotension [None]
  - Acute kidney injury [None]
  - Shock [None]
  - Unresponsive to stimuli [None]
  - Lactic acidosis [None]
  - Metabolic acidosis [None]
  - Haemodialysis [None]
